FAERS Safety Report 6754580-1 (Version None)
Quarter: 2010Q2

REPORT INFORMATION
  Report Type: 
  Country: None (occurrence: None)
  Receive Date: 20100603
  Receipt Date: 20100521
  Transmission Date: 20101027
  Serious: Yes (Other)
  Sender: FDA-Public Use
  Company Number: US-ELI_LILLY_AND_COMPANY-US201004008070

PATIENT
  Age: 65 Year
  Sex: Female

DRUGS (1)
  1. CYMBALTA [Suspect]
     Indication: DEPRESSION
     Dosage: 60 MG, UNK

REACTIONS (2)
  - CAROTID ARTERY OCCLUSION [None]
  - THROMBOTIC STROKE [None]
